FAERS Safety Report 9553216 (Version 1)
Quarter: 2013Q2

REPORT INFORMATION
  Report Type: Spontaneous
  Country: US (occurrence: None)
  Receive Date: 20130507
  Receipt Date: 20130507
  Transmission Date: 20140414
  Serious: Yes (Other)
  Sender: FDA-Public Use
  Company Number: 2135225-2013-00062

PATIENT
  Sex: Female

DRUGS (2)
  1. ASCLERA [Suspect]
     Indication: PRODUCT USED FOR UNKNOWN INDICATION
     Dosage: 0.4CC, INJ
     Dates: start: 20130128
  2. 25 UNITS-BOTOX [Concomitant]

REACTIONS (3)
  - Wrong drug administered [None]
  - Facial paresis [None]
  - Eyelid oedema [None]
